FAERS Safety Report 7511755-1 (Version None)
Quarter: 2011Q2

REPORT INFORMATION
  Report Type: 
  Country: None (occurrence: None)
  Receive Date: 20110531
  Receipt Date: 20110517
  Transmission Date: 20111010
  Serious: Yes (Hospitalization)
  Sender: FDA-Public Use
  Company Number: ES-ELI_LILLY_AND_COMPANY-ES201105004942

PATIENT
  Sex: Female

DRUGS (8)
  1. RABEPRAZOLE SODIUM [Concomitant]
     Indication: GASTRIC DISORDER
     Dosage: 20 MG, QD
     Route: 048
  2. LORMETAZEPAM [Concomitant]
     Indication: SLEEP DISORDER
     Dosage: 1 MG, QD
     Route: 048
  3. ENANTYUM [Concomitant]
     Indication: PAIN
     Dosage: 25 MG, EVERY 8 HRS
     Route: 048
  4. SIMVASTATINA [Concomitant]
     Indication: HYPERCHOLESTEROLAEMIA
     Dosage: 20 MG, QD
     Route: 048
  5. FORTEO [Suspect]
     Indication: OSTEOPOROSIS
     Dosage: 20 UG, QD
     Route: 058
     Dates: start: 20110509
  6. XUMADOL [Concomitant]
     Indication: PAIN
     Dosage: 1 DF, EVERY 8 HRS
     Route: 048
  7. PRADAXA [Concomitant]
     Indication: CARDIOVASCULAR DISORDER
     Dosage: 2 DF, QD
     Route: 048
  8. EUTIROX [Concomitant]
     Indication: HYPOTHYROIDISM
     Dosage: 50 UG, EACH MORNING
     Route: 048

REACTIONS (2)
  - HOSPITALISATION [None]
  - TINNITUS [None]
